FAERS Safety Report 25195012 (Version 5)
Quarter: 2025Q3

REPORT INFORMATION
  Report Type: Report from Study
  Country: US (occurrence: US)
  Receive Date: 20250415
  Receipt Date: 20250731
  Transmission Date: 20251021
  Serious: Yes (Hospitalization, Other)
  Sender: ACADIA PHARMACEUTICALS
  Company Number: US-ACADIA PHARMACEUTICALS INC.-ACA-2025-PIM-004069

PATIENT
  Age: 76 Year
  Sex: Female

DRUGS (22)
  1. NUPLAZID [Suspect]
     Active Substance: PIMAVANSERIN TARTRATE
     Indication: Parkinson^s disease psychosis
     Dosage: 34 MILLIGRAM, QD
     Route: 048
     Dates: start: 20250402, end: 20250408
  2. NUPLAZID [Suspect]
     Active Substance: PIMAVANSERIN TARTRATE
     Indication: Parkinson^s disease
  3. NUPLAZID [Suspect]
     Active Substance: PIMAVANSERIN TARTRATE
     Indication: Hallucination
  4. LEVOTHYROXINE [Concomitant]
     Active Substance: LEVOTHYROXINE
  5. METHENAMINE [Concomitant]
     Active Substance: METHENAMINE
  6. RYTARY [Concomitant]
     Active Substance: CARBIDOPA\LEVODOPA
  7. RYTARY [Concomitant]
     Active Substance: CARBIDOPA\LEVODOPA
  8. PROZAC [Concomitant]
     Active Substance: FLUOXETINE HYDROCHLORIDE
  9. FAMOTIDINE [Concomitant]
     Active Substance: FAMOTIDINE
  10. ALPRAZOLAM [Concomitant]
     Active Substance: ALPRAZOLAM
  11. CARBIDOPA\LEVODOPA [Concomitant]
     Active Substance: CARBIDOPA\LEVODOPA
  12. ESTRADIOL [Concomitant]
     Active Substance: ESTRADIOL
  13. RIVASTIGMINE [Concomitant]
     Active Substance: RIVASTIGMINE
  14. MYRBETRIQ [Concomitant]
     Active Substance: MIRABEGRON
  15. SENNA LEAF [Concomitant]
     Active Substance: SENNA LEAF
  16. MIRALAX [Concomitant]
     Active Substance: POLYETHYLENE GLYCOL 3350
  17. VITAMIN B COMPLEX [Concomitant]
     Active Substance: CYANOCOBALAMIN\DEXPANTHENOL\NIACINAMIDE\PYRIDOXINE HYDROCHLORIDE\RIBOFLAVIN 5^-PHOSPHATE SODIUM\THIA
  18. VITAMIN D2 [Concomitant]
     Active Substance: ERGOCALCIFEROL
  19. XANAX [Concomitant]
     Active Substance: ALPRAZOLAM
  20. SENNA LAXATIVE [Concomitant]
     Active Substance: SENNOSIDES
  21. VITAMIN D NOS [Concomitant]
     Active Substance: CHOLECALCIFEROL\ERGOCALCIFEROL
  22. VITAMIN B [Concomitant]
     Active Substance: VITAMIN B

REACTIONS (9)
  - Hypersomnia [Not Recovered/Not Resolved]
  - Urinary tract infection [Not Recovered/Not Resolved]
  - Loss of control of legs [Not Recovered/Not Resolved]
  - Infection [Not Recovered/Not Resolved]
  - Asthenia [Not Recovered/Not Resolved]
  - Gait inability [Not Recovered/Not Resolved]
  - Bedridden [Not Recovered/Not Resolved]
  - Incoherent [Not Recovered/Not Resolved]
  - Somnolence [Not Recovered/Not Resolved]

NARRATIVE: CASE EVENT DATE: 20250403
